FAERS Safety Report 7784301-5 (Version None)
Quarter: 2011Q3

REPORT INFORMATION
  Report Type: 
  Country: None (occurrence: None)
  Receive Date: 20110928
  Receipt Date: 20110921
  Transmission Date: 20111222
  Serious: Yes (Death)
  Sender: FDA-Public Use
  Company Number: US-ELI_LILLY_AND_COMPANY-US201109002145

PATIENT
  Sex: Female
  Weight: 51.25 kg

DRUGS (14)
  1. ATROPINE SULFATE [Concomitant]
     Dosage: 1 %, UNK
  2. OXYCODONE [Concomitant]
     Indication: PAIN
     Dosage: 5 MG, UNK
     Route: 048
  3. METFORMIN HCL [Concomitant]
  4. BISOPROLOL FUMARATE AND HYDROCHLOROTHIAZIDE [Concomitant]
  5. MEGACE ES [Concomitant]
     Route: 048
  6. ACETAMINOPHEN AND HYDROCODONE BITARTRATE [Concomitant]
     Indication: PAIN
     Route: 048
  7. FLAGYL [Concomitant]
     Indication: DIVERTICULITIS
  8. GEMZAR [Suspect]
     Indication: PANCREATIC CARCINOMA METASTATIC
     Dosage: 1700 MG, WEEKLY (1/W)
     Route: 042
     Dates: start: 20100903, end: 20101029
  9. METRONIDAZOLE [Concomitant]
     Route: 048
  10. CIPROFLOXACIN [Concomitant]
     Indication: DIVERTICULUM
  11. LORAZEPAM [Concomitant]
     Indication: NAUSEA
     Dosage: 0.5 MG, UNK
     Route: 048
  12. MORPHINE SULFATE [Concomitant]
     Indication: PAIN
     Dosage: 0.25 UNK, UNK
     Route: 048
  13. DURAGESIC-100 [Concomitant]
     Dosage: 25 MCG/HR
     Route: 062
  14. GLIPIZIDE [Concomitant]
     Route: 048

REACTIONS (3)
  - CHOLELITHIASIS [None]
  - NEOPLASM PROGRESSION [None]
  - URINARY TRACT INFECTION [None]
